FAERS Safety Report 8953291 (Version 4)
Quarter: 2013Q4

REPORT INFORMATION
  Report Type: Spontaneous
  Country: GB (occurrence: GB)
  Receive Date: 20121029
  Receipt Date: 20131204
  Transmission Date: 20140711
  Serious: Yes (Other)
  Sender: FDA-Public Use
  Company Number: GB-JNJFOC-20121007824

PATIENT
  Age: 64 Year
  Sex: Female

DRUGS (2)
  1. STELARA [Suspect]
     Indication: PSORIASIS
     Dosage: 2 YEARS AGO
     Route: 058
     Dates: start: 20100512, end: 20121010
  2. LEVOTHYROXINE [Concomitant]
     Indication: HYPOTHYROIDISM
     Route: 048

REACTIONS (11)
  - Lupus-like syndrome [Unknown]
  - Serum sickness [Unknown]
  - Vasculitis [Recovered/Resolved]
  - Injection site rash [Recovered/Resolved with Sequelae]
  - C-reactive protein increased [Unknown]
  - Blood creatinine increased [Unknown]
  - Dyspnoea [Recovered/Resolved]
  - Rash [Recovered/Resolved]
  - Abdominal pain [Recovered/Resolved]
  - Incorrect product storage [Unknown]
  - Lethargy [Recovered/Resolved]
